FAERS Safety Report 5678794-7 (Version None)
Quarter: 2008Q1

REPORT INFORMATION
  Report Type: 
  Country: None (occurrence: None)
  Receive Date: 20080324
  Receipt Date: 20080324
  Transmission Date: 20080703
  Serious: No
  Sender: FDA-Public Use
  Company Number: None

PATIENT
  Sex: Male
  Weight: 45.3597 kg

DRUGS (7)
  1. ZOLOFT [Suspect]
     Indication: ANXIETY
     Dosage: UP TO 250MG DAILY PO
     Route: 048
     Dates: start: 19970805, end: 20011017
  2. ZOLOFT [Suspect]
     Indication: CONFUSIONAL STATE
     Dosage: UP TO 250MG DAILY PO
     Route: 048
     Dates: start: 19970805, end: 20011017
  3. ZOLOFT [Suspect]
     Indication: DEREALISATION
     Dosage: UP TO 250MG DAILY PO
     Route: 048
     Dates: start: 19970805, end: 20011017
  4. ZOLOFT [Suspect]
     Indication: DIZZINESS
     Dosage: UP TO 250MG DAILY PO
     Route: 048
     Dates: start: 19970805, end: 20011017
  5. ZOLOFT [Suspect]
     Indication: HEADACHE
     Dosage: UP TO 250MG DAILY PO
     Route: 048
     Dates: start: 19970805, end: 20011017
  6. DEPAKOTE [Concomitant]
  7. BUSPAR [Concomitant]

REACTIONS (11)
  - ANGER [None]
  - ANXIETY [None]
  - CONDITION AGGRAVATED [None]
  - CONFUSIONAL STATE [None]
  - DEREALISATION [None]
  - DISSOCIATION [None]
  - DIZZINESS [None]
  - HEADACHE [None]
  - NAUSEA [None]
  - PANIC REACTION [None]
  - SUICIDAL IDEATION [None]
